FAERS Safety Report 16522608 (Version 1)
Quarter: 2019Q3

REPORT INFORMATION
  Report Type: Spontaneous
  Country: US (occurrence: US)
  Receive Date: 20190703
  Receipt Date: 20190703
  Transmission Date: 20191004
  Serious: No
  Sender: FDA-Public Use
  Company Number: US-ASTRAZENECA-2019SE84488

PATIENT
  Sex: Male

DRUGS (2)
  1. BYDUREON BCISE [Suspect]
     Active Substance: EXENATIDE
     Indication: TYPE 2 DIABETES MELLITUS
     Route: 065
     Dates: start: 20190511
  2. BYDUREON [Concomitant]
     Active Substance: EXENATIDE

REACTIONS (3)
  - Injection site erythema [Unknown]
  - Circumstance or information capable of leading to medication error [Unknown]
  - Injection site pain [Not Recovered/Not Resolved]
